FAERS Safety Report 18052102 (Version 1)
Quarter: 2020Q3

REPORT INFORMATION
  Report Type: Spontaneous
  Country: US (occurrence: US)
  Receive Date: 20200722
  Receipt Date: 20200722
  Transmission Date: 20201103
  Serious: No
  Sender: FDA-Public Use
  Company Number: US-ELI_LILLY_AND_COMPANY-US202006010056

PATIENT
  Age: 62 Year
  Sex: Female

DRUGS (3)
  1. TRAZODONE [Suspect]
     Active Substance: TRAZODONE HYDROCHLORIDE
     Indication: DEPRESSION
     Dosage: 300 MG, UNKNOWN
     Route: 065
  2. CYMBALTA [Suspect]
     Active Substance: DULOXETINE HYDROCHLORIDE
     Indication: DEPRESSION
     Dosage: 60 MG, UNKNOWN
     Route: 065
  3. REMERON [Suspect]
     Active Substance: MIRTAZAPINE
     Indication: DEPRESSION
     Dosage: UNK UNK, UNKNOWN
     Route: 065

REACTIONS (6)
  - Feeling abnormal [Not Recovered/Not Resolved]
  - Drug resistance [Unknown]
  - Major depression [Not Recovered/Not Resolved]
  - COVID-19 [Recovered/Resolved]
  - Chest pain [Not Recovered/Not Resolved]
  - Mental disorder [Not Recovered/Not Resolved]
